FAERS Safety Report 10200441 (Version 3)
Quarter: 2015Q1

REPORT INFORMATION
  Report Type: Report from Study
  Country: CN (occurrence: CN)
  Receive Date: 20140528
  Receipt Date: 20150224
  Transmission Date: 20150720
  Serious: Yes (Death, Hospitalization)
  Sender: FDA-Public Use
  Company Number: CN-ROCHE-1392311

PATIENT
  Age: 55 Year
  Sex: Female
  Weight: 62 kg

DRUGS (5)
  1. DOCETAXEL. [Suspect]
     Active Substance: DOCETAXEL
     Indication: HER-2 POSITIVE BREAST CANCER
     Dosage: LAST DOSE PRIOR TO SAE: 03/JUL/2013
     Route: 042
     Dates: start: 20130501
  2. PERTUZUMAB [Suspect]
     Active Substance: PERTUZUMAB
     Dosage: LIQUID, MAINTAINACE DOSE, LAST DOSE PRIOR TO SAE-28/APR/2014
     Route: 042
  3. TRASTUZUMAB [Suspect]
     Active Substance: TRASTUZUMAB
     Indication: HER-2 POSITIVE BREAST CANCER
     Dosage: LOADING DOSE
     Route: 042
     Dates: start: 20130501, end: 20130501
  4. PERTUZUMAB [Suspect]
     Active Substance: PERTUZUMAB
     Indication: HER-2 POSITIVE BREAST CANCER
     Dosage: LOADING DOSE, LIQUID
     Route: 042
     Dates: start: 20130501, end: 20130501
  5. TRASTUZUMAB [Suspect]
     Active Substance: TRASTUZUMAB
     Dosage: MAINTENANCE DOSE: 6 MG/KG, LAST DOSE PRIOR TO SAE-28/APR/2014
     Route: 042

REACTIONS (1)
  - Acute myeloid leukaemia [Fatal]

NARRATIVE: CASE EVENT DATE: 20140428
